FAERS Safety Report 16692768 (Version 2)
Quarter: 2019Q3

REPORT INFORMATION
  Report Type: Spontaneous
  Country: US (occurrence: US)
  Receive Date: 20190812
  Receipt Date: 20190822
  Transmission Date: 20191004
  Serious: Yes (Hospitalization, Other)
  Sender: FDA-Public Use
  Company Number: US-SA-2019SA215100

PATIENT
  Age: 64 Year
  Sex: Female
  Weight: 61.2 kg

DRUGS (40)
  1. PLAVIX [Suspect]
     Active Substance: CLOPIDOGREL BISULFATE
     Dosage: 75 MG, UNK
     Route: 048
     Dates: start: 20190601, end: 20190601
  2. ACETYLSALICYLIC ACID [Suspect]
     Active Substance: ASPIRIN
     Dosage: 100 MG
     Route: 048
     Dates: start: 20190602, end: 20190625
  3. ACETYLSALICYLIC ACID [Suspect]
     Active Substance: ASPIRIN
     Dosage: 100 MG
     Route: 048
     Dates: start: 20190626, end: 20190626
  4. ACETAMINOPHEN. [Concomitant]
     Active Substance: ACETAMINOPHEN
     Dosage: 650 MG
     Dates: start: 20190531
  5. IOPAMIDOL [Concomitant]
     Active Substance: IOPAMIDOL
     Dosage: 50 UNK
     Dates: start: 20190531, end: 20190531
  6. CEFAZOLIN [Concomitant]
     Active Substance: CEFAZOLIN
     Indication: SKIN LACERATION
     Dosage: 1000 MG
     Dates: start: 20190610, end: 20190610
  7. VOLTAREN [DICLOFENAC] [Concomitant]
     Active Substance: DICLOFENAC SODIUM
     Dosage: 1 UNK
     Dates: start: 20180223, end: 20190531
  8. TDAP [Concomitant]
     Active Substance: TETANUS TOXOID, REDUCED DIPHTHERIA TOXOID AND ACELLULAR PERTUSSIS VACCINE ADSORBED, TDAP
     Indication: PROPHYLAXIS
     Dosage: UNK
     Route: 030
     Dates: start: 20190610
  9. PLAVIX [Suspect]
     Active Substance: CLOPIDOGREL BISULFATE
     Dosage: 75 MG
     Route: 048
     Dates: start: 20190626, end: 20190626
  10. GADOBENATE DIMEGLUMINE [Concomitant]
     Active Substance: GADOBENATE DIMEGLUMINE
     Dosage: 10 UNK
     Dates: start: 20190531, end: 20190531
  11. VENLAFAXINE [Concomitant]
     Active Substance: VENLAFAXINE HYDROCHLORIDE
     Dosage: 75 MG
     Dates: start: 20190605
  12. PROPOFOL. [Concomitant]
     Active Substance: PROPOFOL
     Indication: SKIN LACERATION
     Dosage: 10 MG
     Dates: start: 20190610, end: 20190610
  13. XYLOCAINE [Concomitant]
     Active Substance: LIDOCAINE HYDROCHLORIDE
     Dosage: 10 UNK
     Dates: start: 20190603, end: 20190603
  14. ACETYLSALICYLIC ACID [Suspect]
     Active Substance: ASPIRIN
     Dosage: 100 MG
     Route: 048
     Dates: start: 20190601, end: 20190601
  15. MORPHINE [Concomitant]
     Active Substance: MORPHINE
     Indication: SKIN LACERATION
     Dosage: 4 MG
     Dates: start: 20190610, end: 20190610
  16. FENTANYL. [Concomitant]
     Active Substance: FENTANYL
     Indication: SKIN LACERATION
     Dosage: 25 UNK
     Dates: start: 20190610, end: 20190611
  17. DEXAMETHASONE. [Concomitant]
     Active Substance: DEXAMETHASONE
     Indication: SKIN LACERATION
     Dosage: 10 MG
     Dates: start: 20190610, end: 20190610
  18. ONDANSETRON [Concomitant]
     Active Substance: ONDANSETRON
     Indication: SKIN LACERATION
     Dosage: 4 MG, UNK
     Dates: start: 20190610, end: 20190610
  19. PLAVIX [Suspect]
     Active Substance: CLOPIDOGREL BISULFATE
     Dosage: 75 MG
     Route: 048
     Dates: start: 20190602, end: 20190625
  20. ACETYLSALICYLIC ACID [Suspect]
     Active Substance: ASPIRIN
     Dosage: 100 MG
     Route: 048
     Dates: start: 20190531
  21. ATENOLOL. [Concomitant]
     Active Substance: ATENOLOL
     Dosage: 100 MG
     Dates: start: 20190604
  22. SIMVASTATIN. [Concomitant]
     Active Substance: SIMVASTATIN
     Dosage: 40 MG
     Dates: start: 20190531
  23. EPHEDRINE. [Concomitant]
     Active Substance: EPHEDRINE
     Indication: SKIN LACERATION
     Dosage: 10 MG
     Dates: start: 20190610, end: 20190610
  24. DICLOFENAC [Concomitant]
     Active Substance: DICLOFENAC
     Dosage: 3 G
     Dates: start: 20190223, end: 20190531
  25. ASPIRIN [ACETYLSALICYLIC ACID] [Concomitant]
     Active Substance: ASPIRIN
     Dosage: 325 MG, UNK
     Route: 065
     Dates: start: 20190531, end: 20190531
  26. CLOBETASOL [Concomitant]
     Active Substance: CLOBETASOL
     Indication: SKIN LACERATION
     Dosage: 2 G, BID
     Dates: start: 20190610
  27. MULTIVITAMINS [VITAMINS NOS] [Concomitant]
     Active Substance: VITAMINS
     Dosage: 1 DF, UNK
     Dates: start: 20190531
  28. ESTRADIOL. [Concomitant]
     Active Substance: ESTRADIOL
     Dosage: 1 MG, UNK
     Dates: start: 20190531, end: 20190603
  29. ADALIMUMAB [Concomitant]
     Active Substance: ADALIMUMAB
     Dosage: 40 MG
     Dates: start: 20190208
  30. FOLIC ACID. [Concomitant]
     Active Substance: FOLIC ACID
     Dosage: 2 MG
     Dates: start: 20190531, end: 20190603
  31. MIDAZOLAM [Concomitant]
     Active Substance: MIDAZOLAM HYDROCHLORIDE
     Dosage: 2 MG
     Dates: start: 20190610, end: 20190610
  32. LACTATED RINGERS SOLUTION [Concomitant]
     Active Substance: CALCIUM CHLORIDE\POTASSIUM CHLORIDE\SODIUM CHLORIDE\SODIUM LACTATE
     Dosage: 20 OTHER, UNK
     Dates: start: 20190603, end: 20190603
  33. LACTATED RINGERS SOLUTION [Concomitant]
     Active Substance: CALCIUM CHLORIDE\POTASSIUM CHLORIDE\SODIUM CHLORIDE\SODIUM LACTATE
     Dosage: UNK
     Dates: start: 20190610, end: 20190611
  34. METHOTREXATE. [Concomitant]
     Active Substance: METHOTREXATE
     Dosage: 20 MG
     Dates: start: 20190429
  35. PAROXETINE. [Concomitant]
     Active Substance: PAROXETINE
     Dosage: 20 MG
     Dates: start: 20190531, end: 20190604
  36. SODIUM CHLORIDE. [Concomitant]
     Active Substance: SODIUM CHLORIDE
     Indication: SKIN LACERATION
     Dosage: 1000 MG
     Dates: start: 20190610, end: 20190610
  37. MIDAZOLAM [Concomitant]
     Active Substance: MIDAZOLAM HYDROCHLORIDE
     Indication: SKIN LACERATION
     Dosage: 2 MG
     Dates: start: 20190603, end: 20190603
  38. LIDOCAINE. [Concomitant]
     Active Substance: LIDOCAINE
     Indication: SKIN LACERATION
     Dosage: 60 MG
     Dates: start: 20190610, end: 20190610
  39. CETACAINE [BENZOCAINE;BUTYL AMINOBENZOATE;TETRACAINE HYDROCHLORIDE] [Concomitant]
     Dosage: 2 UNK
     Dates: start: 20190603, end: 20190603
  40. PROGESTERONE. [Concomitant]
     Active Substance: PROGESTERONE
     Dosage: 100 MG, UNK
     Dates: start: 20190531, end: 20190603

REACTIONS (3)
  - Dizziness [Unknown]
  - Wound haemorrhage [Unknown]
  - Skin laceration [Recovered/Resolved]

NARRATIVE: CASE EVENT DATE: 20190610
